APPROVED DRUG PRODUCT: CHLOROMYXIN
Active Ingredient: CHLORAMPHENICOL; POLYMYXIN B SULFATE
Strength: 1%;10,000 UNITS/GM
Dosage Form/Route: OINTMENT;OPHTHALMIC
Application: N050203 | Product #002
Applicant: PARKE DAVIS PHARMACEUTICAL RESEARCH DIV WARNER LAMBERT CO
Approved: Approved Prior to Jan 1, 1982 | RLD: No | RS: No | Type: DISCN